FAERS Safety Report 5236357-1 (Version None)
Quarter: 2007Q1

REPORT INFORMATION
  Report Type: 
  Country: None (occurrence: None)
  Receive Date: 20061208
  Receipt Date: 20060203
  Transmission Date: 20070707
  Serious: Yes (Other)
  Sender: FDA-Public Use
  Company Number: 2006UW01922

PATIENT
  Age: 58 Year
  Sex: Female
  Weight: 58.967 kg

DRUGS (7)
  1. CRESTOR [Suspect]
     Indication: BLOOD CHOLESTEROL INCREASED
     Dosage: 10 MG DAILY PO
     Route: 048
  2. MAXZIDE [Concomitant]
  3. CALCIUM WITH VITAMIN D [Concomitant]
  4. VITAMIN E [Concomitant]
  5. IRON INFUSIONS [Concomitant]
  6. VITAMIN B-12 [Concomitant]
  7. MYCLINE [Concomitant]

REACTIONS (7)
  - ABDOMINAL PAIN UPPER [None]
  - ANGER [None]
  - ARTHRALGIA [None]
  - CONSTIPATION [None]
  - DYSPHEMIA [None]
  - FEELING JITTERY [None]
  - TREMOR [None]
